FAERS Safety Report 5052145-3 (Version None)
Quarter: 2006Q3

REPORT INFORMATION
  Report Type: 
  Country: None (occurrence: None)
  Receive Date: 20060712
  Receipt Date: 20060712
  Transmission Date: 20061208
  Serious: Yes (Other)
  Sender: FDA-Public Use
  Company Number: None

PATIENT
  Age: 82 Year
  Sex: Female
  Weight: 49.4421 kg

DRUGS (1)
  1. DYAZIDE [Suspect]
     Indication: HYPERTENSION
     Dosage: 1 QD
     Dates: start: 20020101

REACTIONS (3)
  - DYSPNOEA [None]
  - FLUID RETENTION [None]
  - WEIGHT INCREASED [None]
